FAERS Safety Report 5492750-3 (Version None)
Quarter: 2007Q4

REPORT INFORMATION
  Report Type: 
  Country: None (occurrence: None)
  Receive Date: 20071019
  Receipt Date: 20071005
  Transmission Date: 20080405
  Serious: Yes (Other)
  Sender: FDA-Public Use
  Company Number: 2007S1009949

PATIENT
  Age: 59 Year
  Sex: Male

DRUGS (4)
  1. INDAPAMIDE [Suspect]
     Indication: PROPHYLAXIS
     Dosage: 1.25 MG;
     Dates: start: 20051222, end: 20060115
  2. PERINDOPRIL [Suspect]
     Indication: PROPHYLAXIS
     Dosage: 4 MG; ORAL
     Route: 048
     Dates: start: 20051222, end: 20060115
  3. ASPIRIN [Concomitant]
  4. ATORVASTATIN CALCIUM [Concomitant]

REACTIONS (2)
  - DYSGEUSIA [None]
  - SENSATION OF FOREIGN BODY [None]
